FAERS Safety Report 13244674 (Version 1)
Quarter: 2017Q1

REPORT INFORMATION
  Report Type: Spontaneous
  Country: US (occurrence: US)
  Receive Date: 20170217
  Receipt Date: 20170217
  Transmission Date: 20170428
  Serious: No
  Sender: FDA-Public Use
  Company Number: US-NOVOPROD-513544

PATIENT
  Sex: Female

DRUGS (3)
  1. VICTOZA [Suspect]
     Active Substance: LIRAGLUTIDE
     Dosage: 1.2 MG, QD
     Route: 058
  2. VICTOZA [Suspect]
     Active Substance: LIRAGLUTIDE
     Indication: POLYCYSTIC OVARIES
     Dosage: 0.6 MG, QD
     Route: 058
     Dates: start: 20160915
  3. VICTOZA [Suspect]
     Active Substance: LIRAGLUTIDE
     Dosage: 0.6 MG, QD
     Route: 058

REACTIONS (8)
  - Ear infection [Recovering/Resolving]
  - Asthenia [Not Recovered/Not Resolved]
  - Dry mouth [Not Recovered/Not Resolved]
  - Constipation [Not Recovered/Not Resolved]
  - Fatigue [Not Recovered/Not Resolved]
  - Off label use [Not Recovered/Not Resolved]
  - Nausea [Recovering/Resolving]
  - Headache [Recovered/Resolved]

NARRATIVE: CASE EVENT DATE: 201609
